FAERS Safety Report 10474705 (Version 1)
Quarter: 2014Q3

REPORT INFORMATION
  Report Type: Spontaneous
  Country: PL (occurrence: PL)
  Receive Date: 20140925
  Receipt Date: 20140925
  Transmission Date: 20150326
  Serious: Yes (Other)
  Sender: FDA-Public Use
  Company Number: PL-IPSEN BIOPHARMACEUTICALS, INC.-2014-4900

PATIENT
  Age: 66 Year
  Sex: Male

DRUGS (4)
  1. SOMATOSTATIN ANALOGUE [Suspect]
     Active Substance: SOMATOSTATIN
     Indication: NEUROENDOCRINE TUMOUR
     Dosage: NOT REPORTED
     Route: 065
  2. ZANOSAR [Concomitant]
     Active Substance: STREPTOZOCIN
     Indication: PRODUCT USED FOR UNKNOWN INDICATION
     Dosage: NOT REPORTED
     Route: 065
  3. DOTA TATE [Concomitant]
     Indication: PRODUCT USED FOR UNKNOWN INDICATION
     Dosage: NOT REPORTED
     Route: 065
     Dates: start: 2008
  4. LEUCOVORIN [Concomitant]
     Active Substance: LEUCOVORIN
     Indication: PRODUCT USED FOR UNKNOWN INDICATION
     Dosage: NOT REPORTED
     Route: 065

REACTIONS (9)
  - Blood creatinine increased [Unknown]
  - Diarrhoea [Unknown]
  - Flatulence [Unknown]
  - Nephropathy [Unknown]
  - Acute coronary syndrome [Unknown]
  - Constipation [Unknown]
  - Renal failure chronic [None]
  - Abdominal pain [Unknown]
  - Coronary artery stenosis [None]

NARRATIVE: CASE EVENT DATE: 2009
